FAERS Safety Report 24411266 (Version 1)
Quarter: 2024Q4

REPORT INFORMATION
  Report Type: Spontaneous
  Country: CA (occurrence: CA)
  Receive Date: 20241008
  Receipt Date: 20241008
  Transmission Date: 20250115
  Serious: Yes (Hospitalization)
  Sender: PFIZER
  Company Number: CA-PFIZER INC-202400270389

PATIENT
  Age: 38 Year
  Sex: Female

DRUGS (1)
  1. LIDOCAINE HYDROCHLORIDE [Suspect]
     Active Substance: LIDOCAINE HYDROCHLORIDE
     Indication: Pain prophylaxis

REACTIONS (3)
  - Dysgeusia [Unknown]
  - Local anaesthetic systemic toxicity [Unknown]
  - Paraesthesia [Unknown]
